FAERS Safety Report 15981940 (Version 1)
Quarter: 2019Q1

REPORT INFORMATION
  Report Type: Spontaneous
  Country: NL (occurrence: NL)
  Receive Date: 20190219
  Receipt Date: 20190219
  Transmission Date: 20190418
  Serious: Yes (Other)
  Sender: FDA-Public Use
  Company Number: NL-IMPAX LABORATORIES, LLC-2019-IPXL-00541

PATIENT
  Age: 67 Year
  Sex: Female

DRUGS (2)
  1. MIRTAZAPINE ODT [Suspect]
     Active Substance: MIRTAZAPINE
     Indication: MAJOR DEPRESSION
     Dosage: 15 MILLIGRAM, DAILY
     Route: 065
  2. FLUVOXAMINE [Suspect]
     Active Substance: FLUVOXAMINE
     Indication: MAJOR DEPRESSION
     Dosage: 300 MILLIGRAM, DAILY
     Route: 065

REACTIONS (1)
  - Stress cardiomyopathy [Unknown]
